FAERS Safety Report 9281194 (Version 1)
Quarter: 2013Q2

REPORT INFORMATION
  Report Type: Spontaneous
  Country: US (occurrence: None)
  Receive Date: 20130508
  Receipt Date: 20130508
  Transmission Date: 20140414
  Serious: Yes (Hospitalization)
  Sender: FDA-Public Use
  Company Number: None

PATIENT
  Age: 65 Year
  Sex: Male
  Weight: 84.6 kg

DRUGS (1)
  1. CETUXIMAB [Suspect]
     Indication: ADENOCARCINOMA OF COLON
     Route: 042
     Dates: start: 20130328, end: 20130328

REACTIONS (3)
  - Anaphylactic reaction [None]
  - Hypotension [None]
  - Tachycardia [None]
